FAERS Safety Report 19592345 (Version 1)
Quarter: 2021Q3

REPORT INFORMATION
  Report Type: Spontaneous
  Country: US (occurrence: US)
  Receive Date: 20210722
  Receipt Date: 20210722
  Transmission Date: 20211014
  Serious: No
  Sender: FDA-Public Use
  Company Number: US-SA-2021SA236483

PATIENT
  Age: 43 Year
  Sex: Female

DRUGS (1)
  1. KEVZARA [Suspect]
     Active Substance: SARILUMAB
     Indication: RHEUMATOID ARTHRITIS
     Dosage: 200 MG, QOW
     Route: 058
     Dates: start: 20210622

REACTIONS (7)
  - Pelvic pain [Unknown]
  - Pain [Unknown]
  - Night sweats [Unknown]
  - Nausea [Unknown]
  - Myalgia [Unknown]
  - Dysuria [Unknown]
  - Drug ineffective [Unknown]
